FAERS Safety Report 7824944-3 (Version None)
Quarter: 2011Q4

REPORT INFORMATION
  Report Type: 
  Country: None (occurrence: None)
  Receive Date: 20111019
  Receipt Date: 20110923
  Transmission Date: 20120403
  Serious: No
  Sender: FDA-Public Use
  Company Number: US-BRISTOL-MYERS SQUIBB COMPANY-15588817

PATIENT
  Age: 67 Year
  Sex: Male

DRUGS (2)
  1. AVALIDE [Suspect]
     Dosage: 1 DF: 300/12.5 MG
  2. AVAPRO [Suspect]
     Route: 048

REACTIONS (6)
  - HEART RATE IRREGULAR [None]
  - PALPITATIONS [None]
  - ABDOMINAL DISTENSION [None]
  - CONSTIPATION [None]
  - CHEST PAIN [None]
  - DYSPNOEA [None]
